FAERS Safety Report 17763561 (Version 1)
Quarter: 2020Q2

REPORT INFORMATION
  Report Type: Report from Study
  Country: ES (occurrence: ES)
  Receive Date: 20200509
  Receipt Date: 20200509
  Transmission Date: 20200714
  Serious: Yes (Life-Threatening, Hospitalization)
  Sender: FDA-Public Use
  Company Number: ES-TEVA-2020-ES-1232565

PATIENT
  Age: 87 Month
  Sex: Male

DRUGS (6)
  1. RIVAROXABAN (8281A) [Interacting]
     Active Substance: RIVAROXABAN
     Indication: ATRIAL FIBRILLATION
     Route: 048
     Dates: start: 201308, end: 20170829
  2. OMEPRAZOL (2141A) [Concomitant]
     Active Substance: OMEPRAZOLE
     Route: 048
  3. PARACETAMOL (12A) [Concomitant]
     Active Substance: ACETAMINOPHEN
     Route: 048
     Dates: start: 2011
  4. TRAMADOL HIDROCLORURO (2389CH) [Suspect]
     Active Substance: TRAMADOL
     Route: 048
     Dates: start: 201511
  5. LORAZEPAM (1864A) [Concomitant]
     Active Substance: LORAZEPAM
     Route: 048
     Dates: start: 201706
  6. DOXAZOSINA (2387A) [Concomitant]
     Active Substance: DOXAZOSIN MESYLATE
     Route: 048
     Dates: end: 20170829

REACTIONS (2)
  - Lower gastrointestinal haemorrhage [Recovered/Resolved]
  - Drug interaction [Unknown]

NARRATIVE: CASE EVENT DATE: 20170829
